FAERS Safety Report 10467719 (Version 3)
Quarter: 2015Q4

REPORT INFORMATION
  Report Type: Spontaneous
  Country: US (occurrence: US)
  Receive Date: 20140922
  Receipt Date: 20151228
  Transmission Date: 20160304
  Serious: Yes (Other)
  Sender: FDA-Public Use
  Company Number: US-BAYER-2014-140818

PATIENT
  Age: 27 Year
  Sex: Female
  Weight: 56.69 kg

DRUGS (4)
  1. MIRENA [Suspect]
     Active Substance: LEVONORGESTREL
     Indication: CONTRACEPTION
     Dosage: 20 MCG/24HR, CONT
     Route: 015
     Dates: start: 20110510, end: 20121120
  2. LEXAPRO [Concomitant]
     Active Substance: ESCITALOPRAM OXALATE
     Indication: ANXIETY
  3. MIRENA [Suspect]
     Active Substance: LEVONORGESTREL
     Indication: CONTRACEPTION
     Dosage: 20 MCG/24HR, CONT
     Route: 015
     Dates: start: 20070529, end: 20100510
  4. LEXAPRO [Concomitant]
     Active Substance: ESCITALOPRAM OXALATE
     Indication: DEPRESSION
     Dosage: 20 MG, UNK
     Dates: start: 200602

REACTIONS (13)
  - Internal injury [None]
  - Fear [None]
  - Abdominal pain [None]
  - Uterine perforation [None]
  - Genital haemorrhage [None]
  - Device use error [None]
  - Pelvic pain [None]
  - Emotional distress [None]
  - General physical health deterioration [None]
  - Injury [None]
  - Anxiety [None]
  - Medical device discomfort [None]
  - Depression [None]

NARRATIVE: CASE EVENT DATE: 201201
